FAERS Safety Report 19922859 (Version 7)
Quarter: 2022Q1

REPORT INFORMATION
  Report Type: Report from Study
  Country: FR (occurrence: FR)
  Receive Date: 20211005
  Receipt Date: 20220317
  Transmission Date: 20220423
  Serious: Yes (Life-Threatening, Other)
  Sender: FDA-Public Use
  Company Number: FR-PFIZER INC-202101283346

PATIENT
  Age: 13 Year
  Sex: Female
  Weight: 51.2 kg

DRUGS (5)
  1. IRINOTECAN HYDROCHLORIDE [Suspect]
     Active Substance: IRINOTECAN HYDROCHLORIDE
     Indication: Medulloblastoma
     Dosage: 72 MG, DAILY (DAYS ONE TO FIVE OF A 21 DAY CYCLE)
     Route: 042
     Dates: start: 20210824
  2. ABEMACICLIB [Suspect]
     Active Substance: ABEMACICLIB
     Indication: Medulloblastoma
     Dosage: 75 MG, 2X/DAY
     Route: 048
     Dates: start: 20210824, end: 20210907
  3. TEMOZOLOMIDE [Suspect]
     Active Substance: TEMOZOLOMIDE
     Indication: Medulloblastoma
     Dosage: 140 MG, DAILY (ON DAYS ONE TO FIVE OF A 21 DAY CYCLE)
     Route: 048
     Dates: start: 20210824, end: 20210828
  4. CEFIXIME [Concomitant]
     Active Substance: CEFIXIME
     Dosage: UNK
     Dates: start: 20210824
  5. LEVOTHYROXINE [Concomitant]
     Active Substance: LEVOTHYROXINE
     Dosage: UNK
     Dates: start: 20200430

REACTIONS (2)
  - Platelet count decreased [Recovered/Resolved]
  - Thrombocytopenia [Recovered/Resolved]

NARRATIVE: CASE EVENT DATE: 20210907
